FAERS Safety Report 5190744-9 (Version None)
Quarter: 2006Q4

REPORT INFORMATION
  Report Type: 
  Country: None (occurrence: None)
  Receive Date: 20061222
  Receipt Date: 20051220
  Transmission Date: 20070319
  Serious: Yes (Death)
  Sender: FDA-Public Use
  Company Number: US-AVENTIS-200520917US

PATIENT
  Sex: Female
  Weight: 61 kg

DRUGS (10)
  1. LANTUS [Suspect]
     Indication: DIABETES MELLITUS
     Dates: end: 20060701
  2. ALL OTHER THERAPEUTIC PRODUCTS [Concomitant]
     Dosage: DOSE: UNKNOWN
     Dates: start: 20051001
  3. SYNTHROID [Concomitant]
     Dosage: DOSE: UNKNOWN
  4. LIPITOR [Concomitant]
     Dosage: DOSE: UNKNOWN
  5. UNKNOWN DRUG [Concomitant]
     Dosage: DOSE: UNKNOWN
  6. THERAGRAN                          /00554301/ [Concomitant]
     Dosage: DOSE: UNKNOWN
  7. FOLIC ACID [Concomitant]
     Dosage: DOSE: UNKNOWN
  8. VITAMIN B6 [Concomitant]
     Dosage: DOSE: UNKNOWN
  9. VIT D [Concomitant]
     Dosage: DOSE: UNKNOWN
  10. HUMALOG [Concomitant]
     Dosage: DOSE: SLIDING SCALE 5-14

REACTIONS (2)
  - BLOOD GLUCOSE INCREASED [None]
  - BREAST CANCER METASTATIC [None]
